FAERS Safety Report 7334841-8 (Version None)
Quarter: 2011Q1

REPORT INFORMATION
  Report Type: 
  Country: None (occurrence: None)
  Receive Date: 20110301
  Receipt Date: 20110301
  Transmission Date: 20110831
  Serious: Yes (Other)
  Sender: FDA-Public Use
  Company Number: None

PATIENT
  Age: 46 Year
  Sex: Female
  Weight: 137 kg

DRUGS (13)
  1. DIAZEPAM [Concomitant]
  2. CLOPIDOGREL [Concomitant]
  3. TAMIFLU [Suspect]
     Indication: INFLUENZA
     Dosage: 150MG BID PO
     Route: 048
     Dates: start: 20091002, end: 20091004
  4. CLONIDINE [Concomitant]
  5. ASPIRIN [Concomitant]
  6. RIFAMPIN [Concomitant]
  7. METHYLPREDNISOLONE [Concomitant]
  8. POLYETHYLENE GLYCOL [Concomitant]
  9. BACTRIM [Concomitant]
  10. GABAPENTIN [Concomitant]
  11. INSULIN ISOPHANE 70%/INSULIN REGULAR 30% [Concomitant]
  12. METOPROLOL TARTRATE [Concomitant]
  13. CITALOPRAM HYDROBROMIDE [Concomitant]

REACTIONS (5)
  - OEDEMA [None]
  - DYSPNOEA [None]
  - SWOLLEN TONGUE [None]
  - DIALYSIS [None]
  - URTICARIA [None]
